FAERS Safety Report 5012602-2 (Version None)
Quarter: 2006Q2

REPORT INFORMATION
  Report Type: 
  Country: None (occurrence: None)
  Receive Date: 20060410
  Receipt Date: 20051220
  Transmission Date: 20061013
  Serious: No
  Sender: FDA-Public Use
  Company Number: ENTC2005-0159

PATIENT
  Age: 78 Year
  Sex: Female

DRUGS (1)
  1. STALEVO 150 [Suspect]
     Indication: PARKINSON'S DISEASE
     Dosage: 200 MG, 2 IN 1 D, ORAL
     Route: 048
     Dates: start: 20030101

REACTIONS (7)
  - CONFUSIONAL STATE [None]
  - DYSPNOEA [None]
  - FEAR [None]
  - HEADACHE [None]
  - HOT FLUSH [None]
  - NIGHTMARE [None]
  - PALLOR [None]
